FAERS Safety Report 22390926 (Version 1)
Quarter: 2023Q2

REPORT INFORMATION
  Report Type: Spontaneous
  Country: AT (occurrence: AT)
  Receive Date: 20230601
  Receipt Date: 20230601
  Transmission Date: 20230722
  Serious: Yes (Other)
  Sender: FDA-Public Use
  Company Number: None

PATIENT
  Age: 57 Year
  Sex: Female

DRUGS (2)
  1. CLARITHROMYCIN [Suspect]
     Active Substance: CLARITHROMYCIN
     Indication: Helicobacter infection
     Route: 065
     Dates: start: 202301
  2. METRONIDAZOLE [Suspect]
     Active Substance: METRONIDAZOLE
     Indication: Helicobacter infection
     Route: 065
     Dates: start: 202301

REACTIONS (6)
  - Urticaria [Unknown]
  - Sensation of foreign body [Unknown]
  - Type IV hypersensitivity reaction [Unknown]
  - Lip swelling [Unknown]
  - Rash pruritic [Unknown]
  - Swollen tongue [Unknown]

NARRATIVE: CASE EVENT DATE: 20230101
